FAERS Safety Report 17455984 (Version 3)
Quarter: 2020Q2

REPORT INFORMATION
  Report Type: Spontaneous
  Country: US (occurrence: US)
  Receive Date: 20200225
  Receipt Date: 20200521
  Transmission Date: 20200713
  Serious: No
  Sender: FDA-Public Use
  Company Number: US-GILEAD-2020-0452247

PATIENT
  Sex: Male

DRUGS (3)
  1. CEPHALEXINE [Concomitant]
     Active Substance: CEPHALEXIN
  2. MELATONIN [Concomitant]
     Active Substance: MELATONIN
  3. EPCLUSA [Suspect]
     Active Substance: SOFOSBUVIR\VELPATASVIR
     Indication: CHRONIC HEPATITIS C
     Dosage: 1 DOSAGE FORM, QD
     Route: 048
     Dates: start: 20200209, end: 20200508

REACTIONS (4)
  - Product dose omission [Recovered/Resolved]
  - Nasopharyngitis [Not Recovered/Not Resolved]
  - Epistaxis [Unknown]
  - Insomnia [Not Recovered/Not Resolved]
